FAERS Safety Report 19197272 (Version 1)
Quarter: 2021Q2

REPORT INFORMATION
  Report Type: Spontaneous
  Country: PL (occurrence: PL)
  Receive Date: 20210429
  Receipt Date: 20210429
  Transmission Date: 20210717
  Serious: Yes (Death, Other)
  Sender: FDA-Public Use
  Company Number: IT-SUNOVION-2021SUN001611

PATIENT

DRUGS (2)
  1. LATUDA [Suspect]
     Active Substance: LURASIDONE HYDROCHLORIDE
     Indication: PRODUCT USED FOR UNKNOWN INDICATION
     Dosage: FROM 05.12.2020 ? 37 MG X 1 TABLET A DAY, FROM 12.12.2020 ? 37 MG X 2 TABLETS A DAY
     Dates: start: 20201205
  2. OLANZAPINA MYLAN [Concomitant]
     Active Substance: OLANZAPINE

REACTIONS (5)
  - Colon neoplasm [Fatal]
  - Abdominal pain [Fatal]
  - Metastases to liver [Fatal]
  - Asthenia [Fatal]
  - Hepatic function abnormal [Fatal]

NARRATIVE: CASE EVENT DATE: 20210101
